FAERS Safety Report 9275812 (Version 3)
Quarter: 2013Q3

REPORT INFORMATION
  Report Type: Spontaneous
  Country: US (occurrence: US)
  Receive Date: 20130507
  Receipt Date: 20130802
  Transmission Date: 20140515
  Serious: Yes (Hospitalization, Other)
  Sender: FDA-Public Use
  Company Number: US-NOVOPROD-376892

PATIENT
  Age: 12 Year
  Sex: Male
  Weight: 41.3 kg

DRUGS (7)
  1. NORDITROPIN FLEXPRO 6.7 MG/ML [Suspect]
     Indication: GROWTH HORMONE DEFICIENCY
     Dosage: 3 MG QD
     Route: 058
     Dates: start: 201008, end: 201304
  2. NORDITROPIN FLEXPRO 6.7 MG/ML [Suspect]
     Dosage: 3 MG, QD
     Route: 065
     Dates: start: 201304, end: 20130418
  3. HYDROCORTISONE [Concomitant]
     Indication: ADRENAL INSUFFICIENCY
     Dosage: 12.5 MG QD (STRESS DOSING)
     Route: 048
  4. HYDROCORTISONE [Concomitant]
     Dosage: 7.5 MG, QD
     Route: 048
  5. LEVOTHYROXINE [Concomitant]
     Indication: HYPOTHYROIDISM
     Dosage: 25 MCG QD
     Route: 048
  6. VITAMIN D                          /00107901/ [Concomitant]
     Indication: VITAMIN D DEFICIENCY
     Dosage: 1000 MG QD
     Route: 048
  7. CHOLECALCIFEROL [Concomitant]
     Indication: VITAMIN D DEFICIENCY
     Dosage: 1000 MG, QD
     Route: 048

REACTIONS (3)
  - Hydrocephalus [Recovered/Resolved]
  - Headache [Recovered/Resolved]
  - Dizziness [Recovered/Resolved]
